FAERS Safety Report 7402899-3 (Version None)
Quarter: 2011Q2

REPORT INFORMATION
  Report Type: 
  Country: None (occurrence: None)
  Receive Date: 20110408
  Receipt Date: 20110325
  Transmission Date: 20111010
  Serious: Yes (Hospitalization)
  Sender: FDA-Public Use
  Company Number: US-JNJFOC-20100702020

PATIENT
  Sex: Male
  Weight: 40.6 kg

DRUGS (7)
  1. ANTIHISTAMINES [Concomitant]
  2. REMICADE [Suspect]
     Indication: CROHN'S DISEASE
     Route: 042
  3. CIMZIA [Concomitant]
  4. CORTICOSTEROIDS [Concomitant]
  5. REMICADE [Suspect]
     Route: 042
  6. ACETAMINOPHEN [Concomitant]
  7. REMICADE [Suspect]
     Route: 042

REACTIONS (2)
  - HYPOALBUMINAEMIA [None]
  - SMALL INTESTINAL OBSTRUCTION [None]
